FAERS Safety Report 8522202-5 (Version None)
Quarter: 2012Q3

REPORT INFORMATION
  Report Type: 
  Country: None (occurrence: None)
  Receive Date: 20120719
  Receipt Date: 20120709
  Transmission Date: 20120928
  Serious: Yes (Other)
  Sender: FDA-Public Use
  Company Number: TH-ABBOTT-12P-155-0950277-00

PATIENT
  Sex: Female

DRUGS (6)
  1. LOPINAVIR/RITONAVIR [Suspect]
     Indication: HIV INFECTION
     Route: 048
     Dates: start: 20120314
  2. VIREAD [Concomitant]
     Indication: HIV INFECTION
     Route: 048
     Dates: start: 20120314
  3. RITONAVIR [Suspect]
     Indication: HIV INFECTION
     Route: 048
     Dates: start: 20101103, end: 20120311
  4. TRUVADA [Concomitant]
     Indication: HIV INFECTION
     Route: 048
     Dates: start: 20101103, end: 20120312
  5. EPIVIR [Concomitant]
     Indication: HIV INFECTION
     Route: 048
     Dates: start: 20120314
  6. REYATAZ [Concomitant]
     Indication: HIV INFECTION
     Route: 048
     Dates: start: 20101113, end: 20120312

REACTIONS (2)
  - ABORTION SPONTANEOUS [None]
  - MATERNAL EXPOSURE DURING PREGNANCY [None]
